FAERS Safety Report 18868533 (Version 1)
Quarter: 2021Q1

REPORT INFORMATION
  Report Type: Spontaneous
  Country: IT (occurrence: IT)
  Receive Date: 20210209
  Receipt Date: 20210209
  Transmission Date: 20210420
  Serious: Yes (Other)
  Sender: FDA-Public Use
  Company Number: IT-AMGEN-ITASP2021017373

PATIENT
  Age: 75 Year
  Sex: Male
  Weight: 85 kg

DRUGS (1)
  1. NPLATE [Suspect]
     Active Substance: ROMIPLOSTIM
     Indication: IMMUNE THROMBOCYTOPENIA
     Dosage: 165 MICROGRAM/KILOGRAM, QWK
     Route: 058
     Dates: start: 20210114, end: 20210121

REACTIONS (6)
  - Chromaturia [Recovering/Resolving]
  - Pain [Recovering/Resolving]
  - Headache [Recovering/Resolving]
  - Confusional state [Recovering/Resolving]
  - Restless legs syndrome [Recovering/Resolving]
  - Porphyria acute [Recovering/Resolving]

NARRATIVE: CASE EVENT DATE: 20210114
